FAERS Safety Report 23947065 (Version 2)
Quarter: 2024Q2

REPORT INFORMATION
  Report Type: Report from Study
  Country: GB (occurrence: GB)
  Receive Date: 20240606
  Receipt Date: 20240610
  Transmission Date: 20240716
  Serious: Yes (Hospitalization, Other)
  Sender: FDA-Public Use
  Company Number: XI-EMA-DD-20240529-7482675-123120

PATIENT
  Age: 31 Year
  Sex: Female

DRUGS (4)
  1. HYRIMOZ [Suspect]
     Active Substance: ADALIMUMAB-ADAZ
     Indication: Psoriatic arthropathy
     Dosage: 40 MG, QW( PRE-FILLED PEN)
     Route: 058
  2. HYRIMOZ [Suspect]
     Active Substance: ADALIMUMAB-ADAZ
     Dosage: 40 MG, Q2W (FORTNIGHTLY)
     Route: 058
     Dates: start: 20190510
  3. LEFLUNOMIDE [Suspect]
     Active Substance: LEFLUNOMIDE
     Indication: Product used for unknown indication
     Dosage: UNK
     Route: 065
  4. SULFASALAZINE [Suspect]
     Active Substance: SULFASALAZINE
     Indication: Product used for unknown indication
     Dosage: UNK
     Route: 065
     Dates: end: 201911

REACTIONS (16)
  - Abscess oral [Not Recovered/Not Resolved]
  - Skin burning sensation [Unknown]
  - Type 1 diabetes mellitus [Unknown]
  - Arthralgia [Unknown]
  - Peripheral swelling [Unknown]
  - Swelling [Unknown]
  - Pain [Recovering/Resolving]
  - Psoriatic arthropathy [Recovering/Resolving]
  - Crying [Unknown]
  - Hypokinesia [Unknown]
  - Depressed mood [Unknown]
  - Somnolence [Unknown]
  - Sensitivity to weather change [Unknown]
  - Feeling abnormal [Unknown]
  - Fatigue [Unknown]
  - Psoriasis [Unknown]
